FAERS Safety Report 22737164 (Version 5)
Quarter: 2025Q3

REPORT INFORMATION
  Report Type: Spontaneous
  Country: IN (occurrence: IN)
  Receive Date: 20230721
  Receipt Date: 20250730
  Transmission Date: 20251021
  Serious: Yes (Hospitalization, Other)
  Sender: PFIZER
  Company Number: IN-PFIZER INC-2021595036

PATIENT
  Age: 53 Year
  Sex: Female
  Weight: 63 kg

DRUGS (3)
  1. CRIZOTINIB [Suspect]
     Active Substance: CRIZOTINIB
     Indication: Non-small cell lung cancer
     Dosage: 250 MG, 2X/DAY
     Route: 048
     Dates: start: 20180127
  2. CRIZOTINIB [Suspect]
     Active Substance: CRIZOTINIB
     Indication: Lung adenocarcinoma
     Dosage: 250 MG, ONCE A DAY
     Dates: start: 20180217
  3. CRIZOTINIB [Suspect]
     Active Substance: CRIZOTINIB
     Dosage: 250 MG, 1X/DAY
     Route: 048

REACTIONS (35)
  - Pleural effusion [Unknown]
  - Neutrophil count decreased [Unknown]
  - Peripheral swelling [Unknown]
  - Oedema [Unknown]
  - Pain in extremity [Unknown]
  - Myalgia [Unknown]
  - Cough [Unknown]
  - Chest pain [Unknown]
  - Dyspnoea [Unknown]
  - Skin ulcer [Unknown]
  - Nasal ulcer [Unknown]
  - Pain [Unknown]
  - Skin lesion [Unknown]
  - Oropharyngeal pain [Unknown]
  - Nausea [Unknown]
  - Asthenia [Unknown]
  - Oedema peripheral [Unknown]
  - Skin hyperpigmentation [Unknown]
  - Mouth ulceration [Recovered/Resolved]
  - Arthralgia [Unknown]
  - Headache [Unknown]
  - Vomiting [Unknown]
  - Pyrexia [Not Recovered/Not Resolved]
  - Faeces hard [Unknown]
  - Hyperhidrosis [Unknown]
  - Abdominal pain [Unknown]
  - Dizziness [Not Recovered/Not Resolved]
  - Mucosal inflammation [Unknown]
  - Hiccups [Unknown]
  - Haemoglobin decreased [Unknown]
  - White blood cell count decreased [Unknown]
  - Lip ulceration [Unknown]
  - Vision blurred [Not Recovered/Not Resolved]
  - Cardiac disorder [Not Recovered/Not Resolved]
  - Condition aggravated [Not Recovered/Not Resolved]
